FAERS Safety Report 23095481 (Version 4)
Quarter: 2023Q4

REPORT INFORMATION
  Report Type: Spontaneous
  Country: US (occurrence: US)
  Receive Date: 20231023
  Receipt Date: 20231219
  Transmission Date: 20240109
  Serious: Yes (Hospitalization)
  Sender: FDA-Public Use
  Company Number: US-BRISTOL-MYERS SQUIBB COMPANY-2023-149556

PATIENT
  Age: 84 Year
  Sex: Male
  Weight: 100.24 kg

DRUGS (16)
  1. ELIQUIS [Interacting]
     Active Substance: APIXABAN
     Indication: Cardiac disorder
     Dates: start: 2019
  2. ELIQUIS [Interacting]
     Active Substance: APIXABAN
     Indication: Thrombosis prophylaxis
  3. VYNDAMAX [Interacting]
     Active Substance: TAFAMIDIS
     Indication: Depression
     Dates: start: 202309
  4. DOFETILIDE [Interacting]
     Active Substance: DOFETILIDE
     Indication: Atrial fibrillation
     Dates: start: 2020
  5. DOFETILIDE [Interacting]
     Active Substance: DOFETILIDE
     Indication: Arrhythmia
  6. FUROSEMIDE [Interacting]
     Active Substance: FUROSEMIDE
     Indication: Cardiac disorder
     Dates: start: 2019
  7. FUROSEMIDE [Interacting]
     Active Substance: FUROSEMIDE
     Indication: Fluid retention
  8. FOSINOPRIL [Concomitant]
     Active Substance: FOSINOPRIL
     Indication: Hypertension
     Dates: start: 1983
  9. FOSINOPRIL [Concomitant]
     Active Substance: FOSINOPRIL
     Dates: start: 1985
  10. LEVOTHYROXINE [Concomitant]
     Active Substance: LEVOTHYROXINE
     Indication: Hypertension
     Dates: start: 1983
  11. LEVOTHYROXINE [Concomitant]
     Active Substance: LEVOTHYROXINE
     Dates: start: 1985
  12. PROPOFOL [Concomitant]
     Active Substance: PROPOFOL
     Indication: Cardioversion
  13. TAFAMIDIS [Concomitant]
     Active Substance: TAFAMIDIS
     Indication: Product used for unknown indication
     Dates: start: 202308
  14. AMIODARONE [Concomitant]
     Active Substance: AMIODARONE
     Indication: Product used for unknown indication
  15. SOTALOL [Concomitant]
     Active Substance: SOTALOL
     Indication: Product used for unknown indication
  16. DOFETILIDE [Concomitant]
     Active Substance: DOFETILIDE
     Indication: Product used for unknown indication

REACTIONS (8)
  - Brain fog [Not Recovered/Not Resolved]
  - Headache [Unknown]
  - Dizziness [Not Recovered/Not Resolved]
  - Cardiac disorder [Not Recovered/Not Resolved]
  - Dyspnoea [Unknown]
  - Drug interaction [Unknown]
  - Balance disorder [Unknown]
  - Gait disturbance [Unknown]

NARRATIVE: CASE EVENT DATE: 20190101
